FAERS Safety Report 25421710 (Version 2)
Quarter: 2025Q4

REPORT INFORMATION
  Report Type: Report from Study
  Country: EU (occurrence: EU)
  Receive Date: 20250611
  Receipt Date: 20251124
  Transmission Date: 20260118
  Serious: Yes (Hospitalization, Other)
  Sender: TAKEDA
  Company Number: EU-TAKEDA-2024TUS062347

PATIENT
  Age: 31 Year
  Sex: Male

DRUGS (13)
  1. TEDUGLUTIDE [Suspect]
     Active Substance: TEDUGLUTIDE
     Indication: Short-bowel syndrome
     Dosage: 3.3 MILLIGRAM, QD
     Dates: start: 20210730, end: 202407
  2. TEDUGLUTIDE [Suspect]
     Active Substance: TEDUGLUTIDE
     Dosage: 3.5 MILLIGRAM, 4/WEEK
     Dates: start: 202407, end: 202409
  3. TEDUGLUTIDE [Suspect]
     Active Substance: TEDUGLUTIDE
     Dosage: 3.5 MILLIGRAM, QD
     Dates: start: 202409, end: 20250707
  4. TEDUGLUTIDE [Suspect]
     Active Substance: TEDUGLUTIDE
     Dosage: 3.5 MILLIGRAM, Q3WEEKS
     Dates: start: 20250708, end: 20250808
  5. TEDUGLUTIDE [Suspect]
     Active Substance: TEDUGLUTIDE
     Dosage: 3.5 MILLIGRAM, QD
     Dates: start: 20250809
  6. CHOLECALCIFEROL [Concomitant]
     Active Substance: CHOLECALCIFEROL
     Indication: Vitamin supplementation
     Dosage: 10 GTT DROPS, QD
     Dates: end: 20230522
  7. CHOLECALCIFEROL [Concomitant]
     Active Substance: CHOLECALCIFEROL
     Dosage: 20 GTT DROPS, QD
     Dates: start: 20230522
  8. URSODIOL [Concomitant]
     Active Substance: URSODIOL
     Indication: Cholelithiasis
     Dosage: 250 MILLIGRAM, BID
     Dates: start: 20221017
  9. OMEPRAZOLE [Concomitant]
     Active Substance: OMEPRAZOLE
     Indication: Short-bowel syndrome
     Dosage: 20 MILLIGRAM, QD
     Dates: end: 202307
  10. SPIRONOLACTONE [Concomitant]
     Active Substance: SPIRONOLACTONE
     Indication: Nephropathy
     Dosage: 25 MILLIGRAM, BID
     Dates: end: 202305
  11. POTASSIUM CHLORIDE [Concomitant]
     Active Substance: POTASSIUM CHLORIDE
     Indication: Electrolyte substitution therapy
     Dosage: 1 GRAM, QD
  12. MAGNESIUM LACTATE [Concomitant]
     Active Substance: MAGNESIUM LACTATE
     Indication: Mineral supplementation
     Dosage: 0.5 GRAM, BID
  13. ELIQUIS [Concomitant]
     Active Substance: APIXABAN
     Indication: Venous thrombosis
     Dosage: 2.5 MILLIGRAM, BID
     Dates: start: 202501

REACTIONS (4)
  - Schizophrenia [Not Recovered/Not Resolved]
  - Mineral deficiency [Recovered/Resolved]
  - Large intestine polyp [Recovered/Resolved]
  - Depression [Recovered/Resolved]

NARRATIVE: CASE EVENT DATE: 20220101
